FAERS Safety Report 12353720 (Version 3)
Quarter: 2016Q4

REPORT INFORMATION
  Report Type: Spontaneous
  Country: JP (occurrence: JP)
  Receive Date: 20160511
  Receipt Date: 20161111
  Transmission Date: 20170207
  Serious: Yes (Other)
  Sender: FDA-Public Use
  Company Number: JP-AMGEN-JPNSP2016059829

PATIENT
  Age: 69 Year
  Sex: Male
  Weight: 52 kg

DRUGS (5)
  1. SULBACILLIN [Concomitant]
     Active Substance: AMPICILLIN SODIUM\SULBACTAM SODIUM
     Indication: PROPHYLAXIS
     Dosage: 0.75 MG, BID
     Route: 041
  2. DOCETAXEL. [Concomitant]
     Active Substance: DOCETAXEL
     Indication: LIP AND/OR ORAL CAVITY CANCER
     Dosage: 90 MG, QD
     Route: 041
     Dates: start: 20150608, end: 20150608
  3. CISPLATIN. [Concomitant]
     Active Substance: CISPLATIN
     Indication: LIP AND/OR ORAL CAVITY CANCER
     Dosage: 45 MG, QD
     Route: 041
     Dates: start: 20150608, end: 20150611
  4. G-LASTA [Suspect]
     Active Substance: PEGFILGRASTIM
     Indication: COLONY STIMULATING FACTOR PROPHYLAXIS
     Dosage: 3.6 MG, QD
     Route: 058
     Dates: start: 20150613, end: 20150613
  5. 5-FU                               /00098801/ [Concomitant]
     Active Substance: FLUOROURACIL
     Indication: LIP AND/OR ORAL CAVITY CANCER
     Dosage: 1128 MG, QD
     Route: 041
     Dates: start: 20150608, end: 20160611

REACTIONS (1)
  - Febrile neutropenia [Recovered/Resolved]

NARRATIVE: CASE EVENT DATE: 20150616
